FAERS Safety Report 23459562 (Version 1)
Quarter: 2024Q1

REPORT INFORMATION
  Report Type: Spontaneous
  Country: US (occurrence: US)
  Receive Date: 20240131
  Receipt Date: 20240131
  Transmission Date: 20240410
  Serious: Yes (Other)
  Sender: FDA-Public Use
  Company Number: US-SAMSUNG BIOEPIS-SB-2024-02787

PATIENT
  Age: 55 Year
  Sex: Female

DRUGS (1)
  1. ONTRUZANT [Suspect]
     Active Substance: TRASTUZUMAB-DTTB
     Indication: Product used for unknown indication
     Dosage: UNKNOWN
     Route: 042

REACTIONS (2)
  - Chest pain [Unknown]
  - Nausea [Unknown]

NARRATIVE: CASE EVENT DATE: 20240118
